FAERS Safety Report 25357016 (Version 1)
Quarter: 2025Q2

REPORT INFORMATION
  Report Type: Spontaneous
  Country: US (occurrence: US)
  Receive Date: 20250526
  Receipt Date: 20250526
  Transmission Date: 20250716
  Serious: No
  Sender: VANDA PHARMACEUTICALS
  Company Number: US-VANDA PHARMACEUTICALS, INC-2025ILOUS002013

PATIENT
  Sex: Female

DRUGS (1)
  1. FANAPT [Suspect]
     Active Substance: ILOPERIDONE
     Indication: Bipolar I disorder
     Dosage: 6 MILLIGRAM, BID
     Route: 065

REACTIONS (4)
  - Dyspnoea [Unknown]
  - Eyelid ptosis [Unknown]
  - Hypersomnia [Unknown]
  - Somnolence [Unknown]
